FAERS Safety Report 13527862 (Version 1)
Quarter: 2017Q2

REPORT INFORMATION
  Report Type: Spontaneous
  Country: US (occurrence: US)
  Receive Date: 20170509
  Receipt Date: 20170509
  Transmission Date: 20170830
  Serious: No
  Sender: FDA-Public Use
  Company Number: US-PFIZER INC-2017199494

PATIENT
  Sex: Female

DRUGS (2)
  1. LEVOXYL [Concomitant]
     Active Substance: LEVOTHYROXINE SODIUM
     Indication: HYPOTHYROIDISM
     Dosage: 75 UG, 1X/DAY(75MCG, TABLETS, BY MOUTH, ONCE A DAY)
     Route: 048
  2. CYTOMEL [Suspect]
     Active Substance: LIOTHYRONINE SODIUM
     Indication: HYPOTHYROIDISM
     Dosage: SPLIT THE TABLET TAKES HALF IN THE MORNING AND HALF IN THE EVENING
     Route: 048

REACTIONS (3)
  - Heart rate increased [Unknown]
  - Palpitations [Unknown]
  - Product use issue [Unknown]
